FAERS Safety Report 19894997 (Version 1)
Quarter: 2021Q3

REPORT INFORMATION
  Report Type: Not Available
  Country: None (occurrence: None)
  Receive Date: 20210928
  Receipt Date: 20210928
  Transmission Date: 20211014
  Serious: No
  Sender: FDA-Public Use
  Company Number: US-AKORN-171044

PATIENT
  Age: 68 Year
  Sex: Female

DRUGS (1)
  1. AZASITE [Suspect]
     Active Substance: AZITHROMYCIN MONOHYDRATE

REACTIONS (8)
  - Swelling of eyelid [Recovered/Resolved]
  - Dysphonia [None]
  - Aphonia [Recovered/Resolved]
  - Tongue disorder [Recovered/Resolved]
  - Oropharyngeal pain [Recovered/Resolved]
  - Ear swelling [Recovered/Resolved]
  - Swollen tongue [Recovered/Resolved]
  - Off label use [Recovered/Resolved]

NARRATIVE: CASE EVENT DATE: 20210826
